FAERS Safety Report 24029343 (Version 1)
Quarter: 2024Q2

REPORT INFORMATION
  Report Type: Spontaneous
  Country: US (occurrence: US)
  Receive Date: 20240628
  Receipt Date: 20240628
  Transmission Date: 20240716
  Serious: No
  Sender: FDA-Public Use
  Company Number: US-JNJFOC-20240662940

PATIENT
  Age: 89 Year
  Sex: Male

DRUGS (2)
  1. ERLEADA [Suspect]
     Active Substance: APALUTAMIDE
     Indication: Prostate cancer
     Route: 048
  2. ORGOVYX [Suspect]
     Active Substance: RELUGOLIX
     Indication: Prostate cancer
     Route: 048

REACTIONS (9)
  - Pruritus [Unknown]
  - Hyperhidrosis [Not Recovered/Not Resolved]
  - Hypertension [Unknown]
  - Night sweats [Recovering/Resolving]
  - Prostatic specific antigen increased [Unknown]
  - COVID-19 [Unknown]
  - Nocturia [Unknown]
  - Product dose omission in error [Unknown]
  - Incorrect dosage administered [Unknown]

NARRATIVE: CASE EVENT DATE: 20231218
